FAERS Safety Report 4640017-5 (Version None)
Quarter: 2005Q2

REPORT INFORMATION
  Report Type: 
  Country: None (occurrence: None)
  Receive Date: 20050415
  Receipt Date: 20050405
  Transmission Date: 20051028
  Serious: Yes (Hospitalization, Other)
  Sender: FDA-Public Use
  Company Number: 200510970BCC

PATIENT
  Age: 18 Year
  Sex: Male
  Weight: 68.0396 kg

DRUGS (5)
  1. ALEVE [Suspect]
     Indication: HEADACHE
     Dosage: ORAL
     Route: 048
     Dates: start: 20050307
  2. EXTRA STRENGTH TYLENOL [Suspect]
     Indication: HEADACHE
  3. WELLBUTRIN [Concomitant]
  4. DIVALPROEX SODIUM [Concomitant]
  5. PROPRANOLOL [Concomitant]

REACTIONS (5)
  - DRUG TOXICITY [None]
  - DYSARTHRIA [None]
  - HEADACHE [None]
  - OVERDOSE [None]
  - SOMNOLENCE [None]
